FAERS Safety Report 8500199-1 (Version None)
Quarter: 2012Q3

REPORT INFORMATION
  Report Type: 
  Country: None (occurrence: None)
  Receive Date: 20120710
  Receipt Date: 20120704
  Transmission Date: 20120928
  Serious: Yes (Hospitalization, Other)
  Sender: FDA-Public Use
  Company Number: JP-PFIZER INC-2012133164

PATIENT
  Age: 67 Year
  Sex: Male
  Weight: 75.3 kg

DRUGS (3)
  1. EPINASTINE HYDROCHLORIDE [Concomitant]
     Indication: PRURITUS
     Dosage: 20 MG, 1X/DAY
     Route: 048
  2. SUTENT [Suspect]
     Indication: GASTROINTESTINAL STROMAL TUMOUR
     Dosage: 50 MG, 1X/DAY
     Route: 048
     Dates: start: 20120508, end: 20120524
  3. LANSOPRAZOLE [Concomitant]
     Indication: GASTRITIS
     Dosage: 30 MG, 1X/DAY
     Route: 048

REACTIONS (3)
  - PYREXIA [None]
  - HEADACHE [None]
  - PANCYTOPENIA [None]
